FAERS Safety Report 8135046-3 (Version None)
Quarter: 2012Q1

REPORT INFORMATION
  Report Type: 
  Country: None (occurrence: None)
  Receive Date: 20120214
  Receipt Date: 20120206
  Transmission Date: 20120608
  Serious: Yes (Hospitalization, Other)
  Sender: FDA-Public Use
  Company Number: US-BAYER-2011-051062

PATIENT
  Age: 28 Year
  Sex: Female
  Weight: 79 kg

DRUGS (5)
  1. YAZ [Suspect]
     Indication: CONTRACEPTION
     Dosage: UNK
     Dates: start: 20090401, end: 20100101
  2. PHENTERMINE [Concomitant]
     Dosage: 37.5 MG, QD
     Route: 048
     Dates: start: 20091001
  3. CEFDINIR [Concomitant]
     Dosage: UNK
     Route: 048
     Dates: start: 20091113
  4. ALPRAZOLAM [Concomitant]
     Dosage: 0.5 MG, HS
     Route: 048
     Dates: start: 20091207
  5. XYZAL [Concomitant]
     Dosage: 5 MG, QD
     Route: 048
     Dates: start: 20091207

REACTIONS (7)
  - DYSPEPSIA [None]
  - CHOLECYSTITIS CHRONIC [None]
  - ANXIETY [None]
  - CHOLELITHIASIS [None]
  - PAIN [None]
  - INJURY [None]
  - ABDOMINAL PAIN UPPER [None]
